FAERS Safety Report 14141814 (Version 1)
Quarter: 2017Q4

REPORT INFORMATION
  Report Type: Spontaneous
  Country: CH (occurrence: CH)
  Receive Date: 20171030
  Receipt Date: 20171030
  Transmission Date: 20180321
  Serious: Yes (Other)
  Sender: FDA-Public Use
  Company Number: CH-PFIZER INC-2017459696

PATIENT
  Sex: Male

DRUGS (4)
  1. STILNOX [Suspect]
     Active Substance: ZOLPIDEM TARTRATE
     Indication: INSOMNIA
     Dosage: 12.5 MG, DAILY(AT BEDTIME)
     Route: 064
  2. TEMESTA (LORAZEPAM) [Suspect]
     Active Substance: LORAZEPAM
     Indication: ANXIETY DISORDER
     Dosage: 1 MG, 2X/DAY
     Route: 064
  3. SANALEPSI N [Suspect]
     Active Substance: DOXYLAMINE SUCCINATE
     Indication: INSOMNIA
     Dosage: 50 GTT, DAILY
     Route: 064
     Dates: start: 201606, end: 201611
  4. TEMESTA (LORAZEPAM) [Suspect]
     Active Substance: LORAZEPAM
     Dosage: 1 MG, 1X/DAY (AT NIGHT)
     Route: 064
     Dates: start: 2016, end: 201606

REACTIONS (2)
  - Maternal exposure during pregnancy [Unknown]
  - Head deformity [Unknown]

NARRATIVE: CASE EVENT DATE: 201602
